FAERS Safety Report 18589085 (Version 1)
Quarter: 2020Q4

REPORT INFORMATION
  Report Type: Spontaneous
  Country: FR (occurrence: FR)
  Receive Date: 20201208
  Receipt Date: 20201208
  Transmission Date: 20210114
  Serious: Yes (Death)
  Sender: FDA-Public Use
  Company Number: FR-TEVA-2020-FR-1854752

PATIENT
  Age: 18 Year
  Sex: Male

DRUGS (3)
  1. DIAZEPAM. [Suspect]
     Active Substance: DIAZEPAM
     Dosage: NR
     Route: 065
  2. TRAMADOL BASE [Suspect]
     Active Substance: TRAMADOL
     Dosage: NR
     Route: 065
  3. ZOPICLONE [Suspect]
     Active Substance: ZOPICLONE
     Dosage: NR
     Route: 065

REACTIONS (1)
  - Death [Fatal]

NARRATIVE: CASE EVENT DATE: 20201103
